APPROVED DRUG PRODUCT: LISINOPRIL
Active Ingredient: LISINOPRIL
Strength: 10MG
Dosage Form/Route: TABLET;ORAL
Application: A075903 | Product #003 | TE Code: AB
Applicant: ANNORA PHARMA PRIVATE LTD
Approved: Jul 1, 2002 | RLD: No | RS: No | Type: RX